FAERS Safety Report 13440027 (Version 1)
Quarter: 2017Q2

REPORT INFORMATION
  Report Type: Spontaneous
  Country: GB (occurrence: GB)
  Receive Date: 20170413
  Receipt Date: 20170413
  Transmission Date: 20170830
  Serious: No
  Sender: FDA-Public Use
  Company Number: GB-LUPIN PHARMACEUTICALS INC.-2017-00796

PATIENT
  Age: 76 Year
  Sex: Male

DRUGS (4)
  1. MORPHINE [Suspect]
     Active Substance: MORPHINE
     Indication: PROCEDURAL PAIN
     Dosage: 5 MG,QID,
     Route: 048
  2. PARACETAMOL [Concomitant]
     Active Substance: ACETAMINOPHEN
     Indication: PROCEDURAL PAIN
     Dosage: UNK UNK,UNK,UNKNOWN
     Route: 065
  3. MORPHINE [Suspect]
     Active Substance: MORPHINE
     Dosage: 5-10 MG
     Route: 048
  4. MORPHINE [Suspect]
     Active Substance: MORPHINE
     Indication: PRODUCT USED FOR UNKNOWN INDICATION
     Dosage: 10 MG,UNK,UNKNOWN
     Route: 042

REACTIONS (2)
  - Hyperaesthesia [Recovered/Resolved]
  - Myoclonus [Recovered/Resolved]
